FAERS Safety Report 9494057 (Version 1)
Quarter: 2013Q3

REPORT INFORMATION
  Report Type: Spontaneous
  Country: US (occurrence: None)
  Receive Date: 20130829
  Receipt Date: 20130829
  Transmission Date: 20140515
  Serious: Yes (Hospitalization, Disabling, Other)
  Sender: FDA-Public Use
  Company Number: None

PATIENT
  Age: 38 Year
  Sex: Male
  Weight: 74.84 kg

DRUGS (1)
  1. CIPROFLOXACIN 500MG [Suspect]
     Indication: CAMPYLOBACTER INFECTION
     Dosage: CIPRO  TWICE DAILY  TAKEN BY MOUTH
     Route: 048

REACTIONS (14)
  - Depression [None]
  - Anxiety [None]
  - Depersonalisation [None]
  - Insomnia [None]
  - Fatigue [None]
  - Fatigue [None]
  - Migraine [None]
  - Pain [None]
  - Tinnitus [None]
  - Amnesia [None]
  - Product quality issue [None]
  - Ligament rupture [None]
  - Gastrointestinal disorder [None]
  - Nervous system disorder [None]
